FAERS Safety Report 24646959 (Version 1)
Quarter: 2024Q4

REPORT INFORMATION
  Report Type: Other
  Country: IN (occurrence: TH)
  Receive Date: 20241121
  Receipt Date: 20241121
  Transmission Date: 20250114
  Serious: Yes (Life-Threatening, Hospitalization, Other)
  Sender: BRECKENRIDGE PHARMACEUTICAL, INC.
  Company Number: TH-Breckenridge Pharmaceutical, Inc.-2165561

PATIENT
  Age: 23 Year
  Sex: Female

DRUGS (2)
  1. PENICILLAMINE [Suspect]
     Active Substance: PENICILLAMINE
     Indication: Blood cyanide increased
  2. DIMERCAPROL [Concomitant]
     Active Substance: DIMERCAPROL

REACTIONS (1)
  - Stevens-Johnson syndrome [Recovered/Resolved]
